FAERS Safety Report 14962723 (Version 1)
Quarter: 2018Q2

REPORT INFORMATION
  Report Type: Spontaneous
  Country: JP (occurrence: JP)
  Receive Date: 20180601
  Receipt Date: 20180601
  Transmission Date: 20180711
  Serious: Yes (Other)
  Sender: FDA-Public Use
  Company Number: JP-BAYER-2018-098974

PATIENT
  Age: 75 Year
  Sex: Male

DRUGS (2)
  1. BAYASPIRIN 100 MG [Suspect]
     Active Substance: ASPIRIN
     Route: 048
  2. XARELTO [Interacting]
     Active Substance: RIVAROXABAN
     Route: 048

REACTIONS (2)
  - Labelled drug-drug interaction medication error [None]
  - Haemorrhagic diathesis [None]
